FAERS Safety Report 16161045 (Version 4)
Quarter: 2021Q3

REPORT INFORMATION
  Report Type: Spontaneous
  Country: US (occurrence: US)
  Receive Date: 20190405
  Receipt Date: 20210716
  Transmission Date: 20211014
  Serious: No
  Sender: FDA-Public Use
  Company Number: US-LUPIN PHARMACEUTICALS INC.-2019-01743

PATIENT
  Age: 62 Year
  Sex: Male
  Weight: 104.31 kg

DRUGS (2)
  1. TESTOSTERONE TOPICAL SOLUTION, 30 MG/1.5 ML ACTUATION, CIII [Suspect]
     Active Substance: TESTOSTERONE
     Indication: HORMONE REPLACEMENT THERAPY
     Dosage: 30 MILLIGRAM, QD
     Route: 061
     Dates: start: 20190227
  2. TESTOSTERONE TOPICAL SOLUTION, 30 MG/1.5 ML ACTUATION, CIII [Suspect]
     Active Substance: TESTOSTERONE
     Dosage: 30 MILLIGRAM, QD
     Route: 048

REACTIONS (3)
  - Drug ineffective [Unknown]
  - Asthenia [Not Recovered/Not Resolved]
  - Product storage error [Unknown]

NARRATIVE: CASE EVENT DATE: 20190227
